FAERS Safety Report 15144404 (Version 1)
Quarter: 2018Q3

REPORT INFORMATION
  Report Type: Spontaneous
  Country: US (occurrence: US)
  Receive Date: 20180713
  Receipt Date: 20180713
  Transmission Date: 20181010
  Serious: No
  Sender: FDA-Public Use
  Company Number: US-PERRIGO-18US005029

PATIENT
  Sex: Female
  Weight: 55.78 kg

DRUGS (3)
  1. MINOXIDIL. [Suspect]
     Active Substance: MINOXIDIL
     Dosage: 1 ML, QD
     Route: 061
     Dates: start: 2018, end: 2018
  2. MINOXIDIL. [Suspect]
     Active Substance: MINOXIDIL
     Indication: ALOPECIA
     Dosage: UNKNOWN, QD, ON AND OFF
     Route: 061
     Dates: end: 2018
  3. SYNTHROID [Concomitant]
     Active Substance: LEVOTHYROXINE SODIUM
     Indication: HYPOTHYROIDISM
     Dosage: UNK
     Route: 048

REACTIONS (5)
  - Condition aggravated [Unknown]
  - Expired product administered [Recovered/Resolved]
  - Off label use [Recovered/Resolved]
  - Application site dryness [Unknown]
  - Wrong technique in product usage process [Recovered/Resolved]

NARRATIVE: CASE EVENT DATE: 2018
